FAERS Safety Report 25044672 (Version 1)
Quarter: 2025Q1

REPORT INFORMATION
  Report Type: Spontaneous
  Country: US (occurrence: US)
  Receive Date: 20250306
  Receipt Date: 20250306
  Transmission Date: 20250408
  Serious: Yes (Hospitalization)
  Sender: ROCHE
  Company Number: US-ROCHE-10000218272

PATIENT
  Sex: Female

DRUGS (10)
  1. KADCYLA [Suspect]
     Active Substance: ADO-TRASTUZUMAB EMTANSINE
     Indication: Product used for unknown indication
     Route: 050
     Dates: start: 20221125
  2. PERTUZUMAB\TRASTUZUMAB [Suspect]
     Active Substance: PERTUZUMAB\TRASTUZUMAB
     Indication: Product used for unknown indication
     Route: 065
     Dates: start: 20230316
  3. TRASTUZUMAB [Suspect]
     Active Substance: TRASTUZUMAB
     Indication: Product used for unknown indication
     Route: 042
  4. XELODA [Suspect]
     Active Substance: CAPECITABINE
     Indication: Product used for unknown indication
     Dosage: 800 MG (500 MG TAB + 2 X 150 MG TABS) BID BY ONE WEEK FOR CYCLE #19
     Route: 048
  5. TUKYSA [Suspect]
     Active Substance: TUCATINIB
     Indication: Product used for unknown indication
     Route: 048
  6. TUKYSA [Suspect]
     Active Substance: TUCATINIB
     Route: 048
  7. TUKYSA [Suspect]
     Active Substance: TUCATINIB
     Dosage: THERAPY START DATE: 07-DEC-2023
     Route: 065
  8. LETROZOLE [Suspect]
     Active Substance: LETROZOLE
     Indication: Product used for unknown indication
     Route: 065
     Dates: start: 20230426
  9. ARIMIDEX [Suspect]
     Active Substance: ANASTROZOLE
     Indication: Product used for unknown indication
     Route: 065
     Dates: start: 20230126
  10. ARIMIDEX [Suspect]
     Active Substance: ANASTROZOLE
     Route: 065
     Dates: start: 20230308

REACTIONS (9)
  - Diarrhoea [Unknown]
  - Hypokalaemia [Unknown]
  - COVID-19 [Unknown]
  - Dermatitis [Recovered/Resolved]
  - Herpes zoster [Unknown]
  - Arthralgia [Unknown]
  - Myalgia [Unknown]
  - Palmar-plantar erythrodysaesthesia syndrome [Unknown]
  - Neuropathy peripheral [Unknown]

NARRATIVE: CASE EVENT DATE: 20230808
